FAERS Safety Report 6968815-3 (Version None)
Quarter: 2010Q3

REPORT INFORMATION
  Report Type: 
  Country: None (occurrence: None)
  Receive Date: 20100902
  Receipt Date: 20100823
  Transmission Date: 20110219
  Serious: Yes (Other)
  Sender: FDA-Public Use
  Company Number: 201008038

PATIENT
  Age: 39 Year
  Sex: Male

DRUGS (1)
  1. TESTIM [Suspect]
     Indication: HYPOGONADISM
     Dosage: 50 MG, 1 IN 1 D, TRANSDERMAL
     Route: 062
     Dates: start: 20080101, end: 20090101

REACTIONS (4)
  - NEOPLASM PROGRESSION [None]
  - SCROTAL PAIN [None]
  - TESTICULAR NEOPLASM [None]
  - TESTICULAR SEMINOMA (PURE) [None]
